FAERS Safety Report 7033958-5 (Version None)
Quarter: 2010Q4

REPORT INFORMATION
  Report Type: 
  Country: None (occurrence: None)
  Receive Date: 20101005
  Receipt Date: 20100924
  Transmission Date: 20110411
  Serious: Yes (Life-Threatening, Hospitalization, Other)
  Sender: FDA-Public Use
  Company Number: 106378

PATIENT
  Age: 53 Year
  Sex: Male

DRUGS (1)
  1. DAUNORUBICIN HCL [Suspect]
     Indication: ACUTE MYELOID LEUKAEMIA
     Dosage: 93MG X 1 INTRATHECAL
     Route: 037
     Dates: start: 20100924

REACTIONS (2)
  - EXTRAVASATION [None]
  - MEDICATION ERROR [None]
